FAERS Safety Report 18930689 (Version 1)
Quarter: 2021Q1

REPORT INFORMATION
  Report Type: Spontaneous
  Country: NL (occurrence: NL)
  Receive Date: 20210224
  Receipt Date: 20210224
  Transmission Date: 20210420
  Serious: Yes (Other)
  Sender: FDA-Public Use
  Company Number: NL-AUROBINDO-AUR-APL-2021-007633

PATIENT
  Age: 77 Year
  Sex: Male

DRUGS (2)
  1. CIPROFLOXACIN 500 MG FILM?COATED TABLET [Suspect]
     Active Substance: CIPROFLOXACIN
     Indication: MICTURITION DISORDER
     Dosage: 500 MILLIGRAM, TWO TIMES A DAY
     Route: 065
     Dates: start: 20190315
  2. TAMSULOSIN 0.4 MG MODIFIED RELEASE CAPSULES, HARD [Suspect]
     Active Substance: TAMSULOSIN
     Indication: MICTURITION DISORDER
     Dosage: 0.4 MILLIGRAM, ONCE A DAY
     Route: 065
     Dates: start: 20190315

REACTIONS (1)
  - Arrhythmia [Unknown]

NARRATIVE: CASE EVENT DATE: 20190330
